FAERS Safety Report 9508526 (Version 1)
Quarter: 2013Q3

REPORT INFORMATION
  Report Type: Spontaneous
  Country: VE (occurrence: VE)
  Receive Date: 20130909
  Receipt Date: 20130909
  Transmission Date: 20140515
  Serious: Yes (Other)
  Sender: FDA-Public Use
  Company Number: VE-PFIZER INC-2013255738

PATIENT
  Age: 86 Year
  Sex: Female

DRUGS (2)
  1. LIPITOR [Suspect]
     Dosage: 20 MG, UNK
  2. ATAMEL [Concomitant]
     Dosage: UNK

REACTIONS (4)
  - Cardiovascular disorder [Unknown]
  - Vascular bypass dysfunction [Unknown]
  - Pain [Unknown]
  - Insomnia [Unknown]
